FAERS Safety Report 7052212-9 (Version None)
Quarter: 2010Q4

REPORT INFORMATION
  Report Type: 
  Country: None (occurrence: None)
  Receive Date: 20101018
  Receipt Date: 20101018
  Transmission Date: 20110411
  Serious: Yes (Other)
  Sender: FDA-Public Use
  Company Number: None

PATIENT
  Age: 66 Year
  Sex: Female
  Weight: 50.8029 kg

DRUGS (1)
  1. HYIMAX-SR 0.375 ARIS [Suspect]
     Indication: IRRITABLE BOWEL SYNDROME
     Dosage: 1 TAB 2 TIMES DAILY PO
     Route: 048
     Dates: start: 20091015, end: 20101014

REACTIONS (6)
  - DRY MOUTH [None]
  - GLAUCOMA [None]
  - SENSITIVITY OF TEETH [None]
  - TONGUE COATED [None]
  - VISION BLURRED [None]
  - VISUAL IMPAIRMENT [None]
